FAERS Safety Report 6102950-7 (Version None)
Quarter: 2009Q1

REPORT INFORMATION
  Report Type: 
  Country: None (occurrence: None)
  Receive Date: 20090305
  Receipt Date: 20090219
  Transmission Date: 20090719
  Serious: Yes (Other)
  Sender: FDA-Public Use
  Company Number: PHHY2009BR06035

PATIENT
  Sex: Female
  Weight: 65 kg

DRUGS (3)
  1. VOLTAREN [Suspect]
     Indication: BONE PAIN
     Dosage: 50 MG
  2. DICLOFENAC SODIUM [Suspect]
  3. PROLOPA [Concomitant]

REACTIONS (2)
  - ABDOMINAL PAIN UPPER [None]
  - PARKINSON'S DISEASE [None]
